FAERS Safety Report 21471884 (Version 1)
Quarter: 2022Q4

REPORT INFORMATION
  Report Type: Spontaneous
  Country: US (occurrence: US)
  Receive Date: 20221018
  Receipt Date: 20221018
  Transmission Date: 20230113
  Serious: No
  Sender: FDA-Public Use
  Company Number: US-009507513-2210USA004684

PATIENT
  Sex: Female

DRUGS (2)
  1. KEYTRUDA [Suspect]
     Active Substance: PEMBROLIZUMAB
     Indication: Lung carcinoma cell type unspecified stage IV
     Dosage: UNK
  2. PRINIVIL [Suspect]
     Active Substance: LISINOPRIL
     Dosage: UNK
     Route: 048

REACTIONS (3)
  - Implant site swelling [Unknown]
  - Swelling face [Unknown]
  - Swollen tongue [Unknown]
